FAERS Safety Report 7546888-7 (Version None)
Quarter: 2011Q2

REPORT INFORMATION
  Report Type: 
  Country: None (occurrence: None)
  Receive Date: 20110614
  Receipt Date: 20110531
  Transmission Date: 20111010
  Serious: Yes (Other)
  Sender: FDA-Public Use
  Company Number: ES-TYCO HEALTHCARE/MALLINCKRODT-T201101206

PATIENT
  Age: 68 Year

DRUGS (1)
  1. SODIUM IODIDE I-131 SOLUTION [Suspect]
     Indication: GOITRE
     Dosage: 15.55 +/- 2.27

REACTIONS (1)
  - HYPOTHYROIDISM [None]
